FAERS Safety Report 23528128 (Version 1)
Quarter: 2024Q1

REPORT INFORMATION
  Report Type: Spontaneous
  Country: US (occurrence: US)
  Receive Date: 20240215
  Receipt Date: 20240215
  Transmission Date: 20240410
  Serious: No
  Sender: FDA-Public Use
  Company Number: US-Blueprint Medicines Corporation-2355

PATIENT
  Age: 74 Year
  Sex: Female

DRUGS (1)
  1. AYVAKIT [Suspect]
     Active Substance: AVAPRITINIB
     Indication: Systemic mastocytosis
     Route: 065
     Dates: start: 20240125

REACTIONS (4)
  - Hiatus hernia [Unknown]
  - Dizziness [Unknown]
  - Rash [Recovering/Resolving]
  - Tryptase [Recovering/Resolving]

NARRATIVE: CASE EVENT DATE: 20240130
